FAERS Safety Report 4983699-0 (Version None)
Quarter: 2006Q2

REPORT INFORMATION
  Report Type: 
  Country: None (occurrence: None)
  Receive Date: 20060425
  Receipt Date: 20060425
  Transmission Date: 20061013
  Serious: Yes (Hospitalization)
  Sender: FDA-Public Use
  Company Number: None

PATIENT
  Age: 20 Year
  Sex: Female
  Weight: 62 kg

DRUGS (1)
  1. LAMICTAL [Suspect]
     Indication: BIPOLAR DISORDER
     Dosage: 100 DAILY PO
     Route: 048
     Dates: start: 20060215, end: 20060329

REACTIONS (3)
  - RASH MACULO-PAPULAR [None]
  - SWELLING FACE [None]
  - TONGUE DISORDER [None]
